FAERS Safety Report 14561733 (Version 2)
Quarter: 2018Q2

REPORT INFORMATION
  Report Type: Report from Study
  Country: BR (occurrence: BR)
  Receive Date: 20180222
  Receipt Date: 20180626
  Transmission Date: 20180711
  Serious: Yes (Hospitalization, Other)
  Sender: FDA-Public Use
  Company Number: PHHY2017BR113010

PATIENT
  Age: 62 Year
  Sex: Female
  Weight: 61 kg

DRUGS (3)
  1. COLLAGEN [Suspect]
     Active Substance: COLLAGEN
     Indication: PRODUCT USED FOR UNKNOWN INDICATION
     Route: 065
  2. ACLASTA [Suspect]
     Active Substance: ZOLEDRONIC ACID
     Dosage: 1 DF (5MG/100ML), Q12MO
     Route: 042
     Dates: start: 201707
  3. ACLASTA [Suspect]
     Active Substance: ZOLEDRONIC ACID
     Indication: OSTEOPOROSIS
     Dosage: 1 DF (5MG/100ML), Q12MO
     Route: 042
     Dates: start: 2016

REACTIONS (6)
  - Amnesia [Recovered/Resolved]
  - Osteoporosis [Unknown]
  - Blood calcium decreased [Unknown]
  - Transient global amnesia [Recovering/Resolving]
  - Condition aggravated [Unknown]
  - Bone pain [Unknown]

NARRATIVE: CASE EVENT DATE: 2017
